FAERS Safety Report 4700819-3 (Version None)
Quarter: 2005Q2

REPORT INFORMATION
  Report Type: 
  Country: None (occurrence: None)
  Receive Date: 20050624
  Receipt Date: 20041202
  Transmission Date: 20051028
  Serious: Yes (Other)
  Sender: FDA-Public Use
  Company Number: 388229

PATIENT
  Age: 82 Year
  Sex: Male
  Weight: 106.1 kg

DRUGS (2)
  1. XELODA [Suspect]
     Indication: COLORECTAL CANCER
     Dosage: 2500 MG/M2 DAILY ORAL
     Route: 048
     Dates: start: 20040527
  2. ARANESP [Suspect]
     Indication: ANAEMIA OF MALIGNANT DISEASE
     Dosage: 200 MCG 1 PER 2 WEEK SUBCUTANEOUS
     Route: 058
     Dates: start: 20040621, end: 20040818

REACTIONS (2)
  - PRURITUS [None]
  - RASH [None]
